FAERS Safety Report 21684156 (Version 2)
Quarter: 2022Q4

REPORT INFORMATION
  Report Type: Spontaneous
  Country: FR (occurrence: FR)
  Receive Date: 20221205
  Receipt Date: 20221212
  Transmission Date: 20230113
  Serious: Yes (Other)
  Sender: FDA-Public Use
  Company Number: FR-PFIZER INC-PV202200114582

PATIENT

DRUGS (5)
  1. RITUXIMAB [Suspect]
     Active Substance: RITUXIMAB
     Indication: Immunochemotherapy
     Dosage: 6 CYCLIC
  2. CYCLOPHOSPHAMIDE [Suspect]
     Active Substance: CYCLOPHOSPHAMIDE
     Indication: Immunochemotherapy
     Dosage: 6 CYCLIC
  3. DOXORUBICIN [Suspect]
     Active Substance: DOXORUBICIN
     Indication: Immunochemotherapy
     Dosage: 6 CYCLIC
  4. ONCOVIN [Suspect]
     Active Substance: VINCRISTINE SULFATE
     Indication: Immunochemotherapy
     Dosage: 6 CYCLIC
  5. PREDNISONE [Suspect]
     Active Substance: PREDNISONE
     Indication: Immunochemotherapy
     Dosage: 6 CYCLIC

REACTIONS (1)
  - Prepyloric stenosis [Recovered/Resolved]
